FAERS Safety Report 20785266 (Version 1)
Quarter: 2022Q2

REPORT INFORMATION
  Report Type: Spontaneous
  Country: US (occurrence: None)
  Receive Date: 20220504
  Receipt Date: 20220504
  Transmission Date: 20220720
  Serious: No
  Sender: FDA-Public Use
  Company Number: None

PATIENT
  Age: 68 Year
  Sex: Female
  Weight: 81 kg

DRUGS (12)
  1. PAXLOVID [Suspect]
     Active Substance: NIRMATRELVIR\RITONAVIR
     Indication: COVID-19
     Dosage: OTHER QUANTITY : 3 TABLET(S);?FREQUENCY : TWICE A DAY;?
     Route: 048
  2. FAMOTIDINE [Concomitant]
     Active Substance: FAMOTIDINE
  3. METOPROLOL [Concomitant]
     Active Substance: METOPROLOL
  4. LEVOTHYROXINE [Concomitant]
     Active Substance: LEVOTHYROXINE
  5. IRBESARTAN [Concomitant]
     Active Substance: IRBESARTAN
  6. rosu vastatin [Concomitant]
  7. PROBIOTICS NOS [Concomitant]
     Active Substance: PROBIOTICS NOS
  8. VITAMIN D [Concomitant]
     Active Substance: VITAMIN D NOS
  9. ASPIRIN [Concomitant]
     Active Substance: ASPIRIN
  10. VITAMINS [Concomitant]
     Active Substance: VITAMINS
  11. CALCIUM CITRATE [Concomitant]
     Active Substance: CALCIUM CITRATE
  12. citracel [Concomitant]

REACTIONS (2)
  - Dysgeusia [None]
  - Dysgeusia [None]

NARRATIVE: CASE EVENT DATE: 20220503
